FAERS Safety Report 8247429-1 (Version None)
Quarter: 2012Q1

REPORT INFORMATION
  Report Type: 
  Country: None (occurrence: None)
  Receive Date: 20120316
  Receipt Date: 20081107
  Transmission Date: 20120608
  Serious: Yes (Other)
  Sender: FDA-Public Use
  Company Number: PHEH2008US08617

PATIENT
  Age: 60 Year
  Sex: Female
  Weight: 112.5 kg

DRUGS (1)
  1. TEKTURNA [Suspect]
     Dosage: 300 MG, QD, ORAL
     Route: 048
     Dates: start: 20080710, end: 20080904

REACTIONS (4)
  - DYSPNOEA [None]
  - BLOOD PRESSURE INCREASED [None]
  - MYALGIA [None]
  - GENERALISED OEDEMA [None]
